FAERS Safety Report 10467109 (Version 1)
Quarter: 2014Q3

REPORT INFORMATION
  Report Type: Spontaneous
  Country: US (occurrence: US)
  Receive Date: 20140922
  Receipt Date: 20140922
  Transmission Date: 20150326
  Serious: Yes (Life-Threatening)
  Sender: FDA-Public Use
  Company Number: US-MALLINCKRODT-T201403510

PATIENT
  Age: 39 Year
  Sex: Male

DRUGS (1)
  1. EXALGO [Suspect]
     Active Substance: HYDROMORPHONE HYDROCHLORIDE
     Indication: PAIN
     Dosage: UNK
     Route: 065

REACTIONS (3)
  - Overdose [Unknown]
  - Drug ineffective [Unknown]
  - Suicide attempt [Unknown]
